FAERS Safety Report 10655450 (Version 1)
Quarter: 2014Q4

REPORT INFORMATION
  Report Type: Spontaneous
  Country: US (occurrence: US)
  Receive Date: 20141216
  Receipt Date: 20141216
  Transmission Date: 20150529
  Serious: No
  Sender: FDA-Public Use
  Company Number: US-BAYER-2014-184697

PATIENT
  Age: 88 Year
  Sex: Male
  Weight: 79 kg

DRUGS (2)
  1. COUMADIN [Concomitant]
     Active Substance: WARFARIN SODIUM
  2. ALEVE [Suspect]
     Active Substance: NAPROXEN SODIUM
     Indication: ANALGESIC THERAPY
     Dosage: 1 DF, PRN
     Route: 048

REACTIONS (1)
  - Expired product administered [None]

NARRATIVE: CASE EVENT DATE: 201405
